FAERS Safety Report 4368407-9 (Version None)
Quarter: 2004Q2

REPORT INFORMATION
  Report Type: 
  Country: None (occurrence: None)
  Receive Date: 20040602
  Receipt Date: 20040524
  Transmission Date: 20050107
  Serious: Yes (Life-Threatening, Hospitalization)
  Sender: FDA-Public Use
  Company Number: GB-GLAXOSMITHKLINE-B0333713A

PATIENT
  Age: 4 Year
  Sex: Female
  Weight: 18.9 kg

DRUGS (4)
  1. ZINACEF [Suspect]
     Indication: BRONCHIECTASIS
     Dosage: 30MGK PER DAY
     Route: 042
     Dates: start: 20040413, end: 20040501
  2. FLIXOTIDE [Concomitant]
     Indication: ASTHMA
     Dosage: 100MCG PER DAY
  3. LACTULOSE [Concomitant]
     Indication: CONSTIPATION
     Route: 048
     Dates: start: 20030227
  4. SENNA [Concomitant]
     Indication: CONSTIPATION
     Dosage: 2.5ML PER DAY
     Route: 048
     Dates: start: 20030227

REACTIONS (4)
  - BACK PAIN [None]
  - NEUTROPENIA [None]
  - PARAESTHESIA [None]
  - PNEUMONIA [None]
